FAERS Safety Report 19942798 (Version 1)
Quarter: 2021Q4

REPORT INFORMATION
  Report Type: 
  Country: US (occurrence: US)
  Receive Date: 20211012
  Receipt Date: 20211012
  Transmission Date: 20220304
  Serious: No
  Sender: FDA-Public Use
  Company Number: US-C B FLEET CO INC-202101-US-000170

PATIENT
  Sex: Female

DRUGS (1)
  1. MONISTAT 3 [Suspect]
     Active Substance: MICONAZOLE NITRATE
     Indication: Fungal infection
     Dosage: VAGINALLY ONCE, DOSAGE UNKNOWN
     Route: 067

REACTIONS (3)
  - Vulvovaginal burning sensation [Recovered/Resolved]
  - Genital hypoaesthesia [Recovered/Resolved]
  - Vulvovaginal pain [Unknown]
